FAERS Safety Report 5507421-4 (Version None)
Quarter: 2007Q4

REPORT INFORMATION
  Report Type: 
  Country: None (occurrence: None)
  Receive Date: 20071024
  Receipt Date: 20070126
  Transmission Date: 20080405
  Serious: Yes (Other)
  Sender: FDA-Public Use
  Company Number: US-JNJFOC-20070107068

PATIENT
  Age: 46 Year
  Sex: Female

DRUGS (2)
  1. FLEXERIL [Suspect]
     Indication: WHIPLASH INJURY
     Dosage: 10 MG, 2 IN 1 DAY, ORAL
     Route: 048
     Dates: start: 20070116, end: 20070122
  2. EFFEXOR [Concomitant]

REACTIONS (2)
  - MUSCLE SPASMS [None]
  - VENTRICULAR EXTRASYSTOLES [None]
